FAERS Safety Report 4446346-2 (Version None)
Quarter: 2004Q3

REPORT INFORMATION
  Report Type: 
  Country: None (occurrence: None)
  Receive Date: 20040907
  Receipt Date: 20040824
  Transmission Date: 20050211
  Serious: Yes (Other)
  Sender: FDA-Public Use
  Company Number: 2004059258

PATIENT
  Age: 164 Year
  Sex: Female

DRUGS (8)
  1. CARDURA [Suspect]
     Indication: HYPERTENSION
     Dosage: 2 MG (2 MG, )
  2. VALDECOXIB [Suspect]
     Indication: OSTEOARTHRITIS
     Dosage: 20 MG (20 MG, 1 IN 1 D), ORAL
     Route: 048
     Dates: start: 20040423, end: 20040716
  3. PROPRANOLOL [Suspect]
     Indication: ILL-DEFINED DISORDER
     Dosage: ORAL
     Route: 048
  4. KARVEA HCT (HYDROCHLOROTHIAZIDE, IRBESARTAN) [Suspect]
     Indication: HYPERTENSION
     Dosage: ORAL
     Route: 048
     Dates: start: 20040709
  5. BISOPROLOL FUMARATE AND HYDROCHLOROTHIAZIDE [Suspect]
     Indication: HYPERTENSION
     Dates: end: 20040101
  6. ROSUVASTATIN (ROSUVASTATIN) [Suspect]
     Indication: ILL-DEFINED DISORDER
     Dates: end: 20040716
  7. DILTIAZEM [Concomitant]
  8. MUSCLE RELAXANTS (MUSCLE RELAXANTS) [Concomitant]

REACTIONS (5)
  - ASTHMA [None]
  - BLOOD PRESSURE INCREASED [None]
  - CATARACT [None]
  - MEDICATION ERROR [None]
  - OSTEOARTHRITIS [None]
